FAERS Safety Report 7755092-9 (Version None)
Quarter: 2011Q3

REPORT INFORMATION
  Report Type: 
  Country: None (occurrence: None)
  Receive Date: 20110914
  Receipt Date: 20110906
  Transmission Date: 20111222
  Serious: Yes (Other)
  Sender: FDA-Public Use
  Company Number: 1000022886

PATIENT
  Age: 45 Year
  Sex: Female

DRUGS (7)
  1. SAVELLA [Suspect]
     Indication: FIBROMYALGIA
     Dosage: 12.5 MG(12.5 MG,1 IN 1 D),ORAL:12.5 MG BID (12.5 MG, 2 IN 1 D),ORAL:25 MG BID (25 MG,2 IN 1 D), ORAL
     Route: 048
     Dates: start: 20110405, end: 20110405
  2. SAVELLA [Suspect]
     Indication: FIBROMYALGIA
     Dosage: 12.5 MG(12.5 MG,1 IN 1 D),ORAL:12.5 MG BID (12.5 MG, 2 IN 1 D),ORAL:25 MG BID (25 MG,2 IN 1 D), ORAL
     Route: 048
     Dates: start: 20110408, end: 20110411
  3. SAVELLA [Suspect]
     Indication: FIBROMYALGIA
     Dosage: 12.5 MG(12.5 MG,1 IN 1 D),ORAL:12.5 MG BID (12.5 MG, 2 IN 1 D),ORAL:25 MG BID (25 MG,2 IN 1 D), ORAL
     Route: 048
     Dates: start: 20110406, end: 20110407
  4. SAVELLA [Suspect]
     Indication: FIBROMYALGIA
     Dosage: 50 MG BID (50 MG,2 IN 1 D),ORAL
     Route: 048
     Dates: start: 20110412, end: 20110614
  5. NEXIUM [Concomitant]
  6. VICODIN [Concomitant]
  7. ATIVAN [Concomitant]

REACTIONS (3)
  - HEADACHE [None]
  - PETIT MAL EPILEPSY [None]
  - CONFUSIONAL STATE [None]
